FAERS Safety Report 9752163 (Version 1)
Quarter: 2013Q4

REPORT INFORMATION
  Report Type: Spontaneous
  Country: TW (occurrence: TW)
  Receive Date: 20131213
  Receipt Date: 20131213
  Transmission Date: 20140711
  Serious: Yes (Other)
  Sender: FDA-Public Use
  Company Number: TW-AMGEN-TWNOT2013087000

PATIENT
  Age: 88 Year
  Sex: Female

DRUGS (1)
  1. ARANESP [Suspect]
     Indication: NEPHROGENIC ANAEMIA
     Dosage: 20 MCG X 1 / WEEK
     Route: 058
     Dates: end: 20130714

REACTIONS (1)
  - Pruritus generalised [Recovering/Resolving]
